FAERS Safety Report 25037589 (Version 3)
Quarter: 2025Q2

REPORT INFORMATION
  Report Type: Spontaneous
  Country: US (occurrence: US)
  Receive Date: 20250304
  Receipt Date: 20250522
  Transmission Date: 20250717
  Serious: No
  Sender: DR REDDYS
  Company Number: US-DRL-USA-USA/2025/02/002937

PATIENT
  Age: 61 Year
  Sex: Female
  Weight: 67.5 kg

DRUGS (1)
  1. CLONIDINE [Suspect]
     Active Substance: CLONIDINE
     Indication: Blood pressure measurement
     Dosage: DOSE: 1 PATCH (0.3 MG/DAY) FOR 1 WEEK
     Route: 062

REACTIONS (1)
  - Drug ineffective [Unknown]
